FAERS Safety Report 4751630-9 (Version None)
Quarter: 2005Q3

REPORT INFORMATION
  Report Type: 
  Country: None (occurrence: None)
  Receive Date: 20050822
  Receipt Date: 20050810
  Transmission Date: 20060218
  Serious: Yes (Hospitalization, Other)
  Sender: FDA-Public Use
  Company Number: 2005036890

PATIENT
  Age: 50 Year
  Sex: Female
  Weight: 105 kg

DRUGS (4)
  1. LINEZOLID TABLET (LINEZOLID) [Suspect]
     Indication: OSTEOMYELITIS
     Dosage: 1200 MG (600 MG, 2 IN 1 D), ORAL
     Route: 048
     Dates: start: 20040629, end: 20040709
  2. TEMAZEPAM [Concomitant]
  3. ONDANSETRON (ONDANSETRON) [Concomitant]
  4. CO-DYDRAMOL (DIHYDROCODEINE BITARTRATE, PARACETAMOL) [Concomitant]

REACTIONS (7)
  - DIARRHOEA [None]
  - DIPLOPIA [None]
  - EMOTIONAL DISTRESS [None]
  - HEADACHE [None]
  - NAUSEA [None]
  - VISION BLURRED [None]
  - VOMITING [None]
